FAERS Safety Report 15223501 (Version 1)
Quarter: 2018Q3

REPORT INFORMATION
  Report Type: Spontaneous
  Country: US (occurrence: US)
  Receive Date: 20180731
  Receipt Date: 20180731
  Transmission Date: 20181010
  Serious: Yes (Other)
  Sender: FDA-Public Use
  Company Number: US-ENDO PHARMACEUTICALS INC-2018-019418

PATIENT
  Sex: Male
  Weight: 111.11 kg

DRUGS (9)
  1. CIALIS [Concomitant]
     Active Substance: TADALAFIL
     Indication: BENIGN PROSTATIC HYPERPLASIA
     Dosage: 5 MG, DAILY
     Route: 065
  2. ZYRTEC [Concomitant]
     Active Substance: CETIRIZINE HYDROCHLORIDE
     Indication: SEASONAL ALLERGY
     Dosage: 10 MG, DAILY
     Route: 065
  3. FLOMAX [Concomitant]
     Active Substance: TAMSULOSIN HYDROCHLORIDE
     Indication: BENIGN PROSTATIC HYPERPLASIA
     Dosage: UNK UNKNOWN, UNKNOWN
     Route: 065
  4. TESTOPEL [Suspect]
     Active Substance: TESTOSTERONE
     Dosage: 12?14 PELLETS EVERY 3?4 MONTHS
     Route: 058
     Dates: start: 20171220
  5. ANASTROZOLE. [Concomitant]
     Active Substance: ANASTROZOLE
     Indication: BLOOD OESTROGEN ABNORMAL
     Dosage: 1 MG, WEEKLY
     Route: 065
  6. TESTOPEL [Suspect]
     Active Substance: TESTOSTERONE
     Indication: BLOOD TESTOSTERONE DECREASED
     Dosage: 10?12 PELLETS EVERY FOUR MONTHS
     Route: 058
     Dates: start: 201508
  7. FLONASE                            /00908302/ [Concomitant]
     Active Substance: MOMETASONE FUROATE
     Indication: SEASONAL ALLERGY
     Dosage: UNK UNKNOWN, UNKNOWN
     Route: 065
  8. TESTOPEL [Suspect]
     Active Substance: TESTOSTERONE
     Dosage: 12?14 PELLETS EVERY 3?4 MONTHS
     Route: 058
     Dates: start: 201703
  9. VERAPAMIL HCL [Concomitant]
     Active Substance: VERAPAMIL HYDROCHLORIDE
     Indication: TENSION HEADACHE
     Dosage: 180 MG, DAILY
     Route: 065
     Dates: start: 2013

REACTIONS (5)
  - Implant site pain [Recovered/Resolved]
  - Implant site bruising [Recovered/Resolved]
  - Abscess [Unknown]
  - Prescribed overdose [Not Recovered/Not Resolved]
  - Expulsion of medication [Recovered/Resolved]

NARRATIVE: CASE EVENT DATE: 2015
